FAERS Safety Report 7894774-5 (Version None)
Quarter: 2011Q4

REPORT INFORMATION
  Report Type: 
  Country: None (occurrence: None)
  Receive Date: 20111102
  Receipt Date: 20111027
  Transmission Date: 20120403
  Serious: Yes (Life-Threatening)
  Sender: FDA-Public Use
  Company Number: 2011SP048037

PATIENT
  Age: 29 Year
  Sex: Male

DRUGS (1)
  1. SAPHRIS [Suspect]
     Indication: PRODUCT USED FOR UNKNOWN INDICATION
     Dosage: SL
     Route: 060

REACTIONS (3)
  - OVERDOSE [None]
  - COMA [None]
  - SUICIDE ATTEMPT [None]
